FAERS Safety Report 9858677 (Version 1)
Quarter: 2014Q1

REPORT INFORMATION
  Report Type: Spontaneous
  Country: GB (occurrence: GB)
  Receive Date: 20140131
  Receipt Date: 20140131
  Transmission Date: 20141002
  Serious: Yes (Hospitalization)
  Sender: FDA-Public Use
  Company Number: GB-WATSON-2014-00922

PATIENT
  Age: 69 Year
  Sex: Female

DRUGS (3)
  1. AMLODIPINE (UNKNOWN) [Suspect]
     Indication: PRODUCT USED FOR UNKNOWN INDICATION
     Dosage: UNK
     Route: 065
     Dates: start: 20131214
  2. MYSOLINE [Interacting]
     Indication: CONVULSION
     Dosage: 250 MG, BID
     Route: 048
  3. LANSOPRAZOLE [Interacting]
     Indication: HERNIA
     Dosage: UNK
     Route: 065

REACTIONS (2)
  - Grand mal convulsion [Recovered/Resolved]
  - Drug interaction [Recovered/Resolved]
